FAERS Safety Report 8824873 (Version 3)
Quarter: 2012Q4

REPORT INFORMATION
  Report Type: 
  Country: US (occurrence: US)
  Receive Date: 20121004
  Receipt Date: 20121130
  Transmission Date: 20130627
  Serious: Yes (Hospitalization, Other)
  Sender: FDA-Public Use
  Company Number: US-009507513-1210USA001532

PATIENT
  Sex: Female

DRUGS (3)
  1. PEGINTRON [Suspect]
     Indication: HEPATITIS C
     Dosage: UNK
     Dates: start: 20120928
  2. RIBAVIRIN [Suspect]
     Indication: HEPATITIS C
     Dosage: UNK
     Dates: start: 20120928
  3. VICTRELIS [Suspect]
     Dosage: UNK
     Route: 048
     Dates: start: 20121026

REACTIONS (4)
  - Terminal state [Unknown]
  - Headache [Recovering/Resolving]
  - Disturbance in attention [Recovering/Resolving]
  - Fatigue [Unknown]
